FAERS Safety Report 8183806-5 (Version None)
Quarter: 2012Q1

REPORT INFORMATION
  Report Type: 
  Country: None (occurrence: None)
  Receive Date: 20120305
  Receipt Date: 20120222
  Transmission Date: 20120608
  Serious: Yes (Hospitalization)
  Sender: FDA-Public Use
  Company Number: DE-JNJFOC-20120211428

PATIENT
  Age: 48 Year
  Sex: Male

DRUGS (3)
  1. CLINDAMYCIN [Concomitant]
     Indication: TOOTH EXTRACTION
     Route: 048
     Dates: start: 20111229, end: 20120102
  2. RISPERDAL [Suspect]
     Indication: PSYCHOTIC DISORDER
     Route: 048
     Dates: start: 20111222
  3. EUNERPAN [Interacting]
     Indication: PRODUCT USED FOR UNKNOWN INDICATION
     Route: 048
     Dates: start: 20111210

REACTIONS (2)
  - GRAND MAL CONVULSION [None]
  - DRUG INTERACTION [None]
